FAERS Safety Report 23363136 (Version 1)
Quarter: 2024Q1

REPORT INFORMATION
  Report Type: Spontaneous
  Country: FR (occurrence: FR)
  Receive Date: 20240103
  Receipt Date: 20240103
  Transmission Date: 20240409
  Serious: Yes (Hospitalization)
  Sender: FDA-Public Use
  Company Number: None

PATIENT
  Age: 75 Year
  Sex: Female
  Weight: 41 kg

DRUGS (4)
  1. MORPHINE SULFATE [Suspect]
     Active Substance: MORPHINE SULFATE
     Indication: Pain
     Dosage: UNK
     Route: 065
     Dates: start: 20230504, end: 20230506
  2. GENTAMICIN [Suspect]
     Active Substance: GENTAMICIN
     Indication: Septic shock
     Dosage: UNK
     Route: 042
     Dates: start: 20230504, end: 20230506
  3. NOREPINEPHRINE [Suspect]
     Active Substance: NOREPINEPHRINE
     Indication: Hypotension
     Dosage: UNK
     Route: 042
     Dates: start: 20230503, end: 20230509
  4. PIPERACILLIN SODIUM\TAZOBACTAM SODIUM [Suspect]
     Active Substance: PIPERACILLIN SODIUM\TAZOBACTAM SODIUM
     Indication: Septic shock
     Dosage: 1 DOSAGE FORM, Q12H
     Route: 042
     Dates: start: 20230504, end: 20230510

REACTIONS (1)
  - Thrombocytopenia [Recovered/Resolved]

NARRATIVE: CASE EVENT DATE: 20230506
